FAERS Safety Report 4284551-9 (Version None)
Quarter: 2004Q1

REPORT INFORMATION
  Report Type: 
  Country: None (occurrence: None)
  Receive Date: 20040130
  Receipt Date: 20040114
  Transmission Date: 20041129
  Serious: Yes (Life-Threatening)
  Sender: FDA-Public Use
  Company Number: BRO-006966

PATIENT
  Age: 44 Year
  Sex: Male

DRUGS (9)
  1. IOPAMIDOL-300 [Suspect]
     Indication: OESOPHAGEAL CARCINOMA
     Dosage: 80 ML; IV
     Route: 042
     Dates: start: 20031204, end: 20031204
  2. NOVAMIN, (PROCHLORPERAZINE) [Concomitant]
  3. VOLTAREN - SLOW RELEASE ^CIBA-GEIGY^, (DICLOFENAC SODIUM) [Concomitant]
  4. MS CONTIN [Concomitant]
  5. ALLOID (SODIUM ALIGNATE) [Concomitant]
  6. PONTAL (MEFENAMIC ACID) [Concomitant]
  7. CATLEP (INDOMETACIN) [Concomitant]
  8. HACION (TRIAZOLAM) [Concomitant]
  9. PURSENNID (SENNA LEAF) [Concomitant]

REACTIONS (8)
  - ABASIA [None]
  - DRUG TOXICITY [None]
  - EATING DISORDER [None]
  - FEELING HOT [None]
  - PURULENT DISCHARGE [None]
  - PYREXIA [None]
  - STEVENS-JOHNSON SYNDROME [None]
  - WOUND SECRETION [None]
